FAERS Safety Report 8546211-5 (Version None)
Quarter: 2012Q3

REPORT INFORMATION
  Report Type: 
  Country: None (occurrence: None)
  Receive Date: 20120727
  Receipt Date: 20120724
  Transmission Date: 20120928
  Serious: Yes (Hospitalization)
  Sender: FDA-Public Use
  Company Number: PHHO2012NL010896

PATIENT
  Sex: Male
  Weight: 80 kg

DRUGS (5)
  1. BUMETANIDE [Suspect]
     Dosage: 2 MG, BID
     Dates: start: 20111005, end: 20120718
  2. BLINDED NO TREATMENT RECEIVED [Suspect]
     Indication: CARDIOVASCULAR DISORDER
     Dosage: CODE NOT BROKEN
     Route: 048
     Dates: start: 20080521, end: 20111227
  3. PLACEBO [Suspect]
     Indication: CARDIOVASCULAR DISORDER
     Dosage: CODE NOT BROKEN
     Route: 048
     Dates: start: 20080521, end: 20111227
  4. DIOVAN [Concomitant]
     Dosage: 160 MG, UNK
     Dates: end: 20120718
  5. BLINDED ALISKIREN [Suspect]
     Indication: CARDIOVASCULAR DISORDER
     Dosage: CODE NOT BROKEN
     Route: 048
     Dates: start: 20080521, end: 20111227

REACTIONS (1)
  - MALAISE [None]
